FAERS Safety Report 5907057-7 (Version None)
Quarter: 2008Q4

REPORT INFORMATION
  Report Type: 
  Country: None (occurrence: None)
  Receive Date: 20081002
  Receipt Date: 20081002
  Transmission Date: 20090506
  Serious: Yes (Disabling, Other)
  Sender: FDA-Public Use
  Company Number: None

PATIENT
  Age: 31 Year
  Sex: Female
  Weight: 107.5025 kg

DRUGS (1)
  1. KENALOG [Suspect]
     Indication: TENOSYNOVITIS STENOSANS
     Dosage: 1 INJECTION IM
     Route: 030
     Dates: start: 20080801, end: 20080801

REACTIONS (19)
  - ABDOMINAL PAIN LOWER [None]
  - CONSTIPATION [None]
  - CONTUSION [None]
  - ERUCTATION [None]
  - ERYTHEMA [None]
  - FLATULENCE [None]
  - GASTROOESOPHAGEAL REFLUX DISEASE [None]
  - INFLUENZA LIKE ILLNESS [None]
  - INJECTION SITE DISCOLOURATION [None]
  - INJECTION SITE ERYTHEMA [None]
  - INJECTION SITE MACULE [None]
  - INJECTION SITE PAIN [None]
  - NAIL BED BLEEDING [None]
  - PAIN [None]
  - PARAESTHESIA [None]
  - POLLAKIURIA [None]
  - PRURITUS [None]
  - SKIN DISCOLOURATION [None]
  - SWELLING FACE [None]
